FAERS Safety Report 13739646 (Version 1)
Quarter: 2017Q3

REPORT INFORMATION
  Report Type: Spontaneous
  Country: FR (occurrence: FR)
  Receive Date: 20170711
  Receipt Date: 20170711
  Transmission Date: 20171127
  Serious: Yes (Other)
  Sender: FDA-Public Use
  Company Number: PHHY2009FR58326

PATIENT
  Age: 61 Year
  Sex: Female

DRUGS (3)
  1. LEVOTHYROX [Concomitant]
     Active Substance: LEVOTHYROXINE
     Indication: AUTOIMMUNE THYROIDITIS
     Dosage: 100 MCG DAILY FOR TWO DAYS AND 75 MCG THE THIRD DAY.
  2. CARTEOLOL [Suspect]
     Active Substance: CARTEOLOL
     Indication: INTRAOCULAR PRESSURE INCREASED
     Dosage: 1 DRP, QD
     Route: 047
     Dates: start: 200901, end: 20091127
  3. ALPHAGAN P [Concomitant]
     Active Substance: BRIMONIDINE TARTRATE
     Dosage: UNK,UNK

REACTIONS (12)
  - Spinal osteoarthritis [Unknown]
  - Blood pressure decreased [Recovered/Resolved]
  - Fatigue [Recovered/Resolved]
  - Facial paresis [Unknown]
  - Tracheal disorder [Unknown]
  - Nausea [Recovered/Resolved]
  - Headache [Recovered/Resolved]
  - Metal poisoning [Unknown]
  - Muscle spasms [Recovered/Resolved]
  - Myalgia [Recovered/Resolved]
  - Eyelid ptosis [Unknown]
  - Nasal disorder [Recovered/Resolved]

NARRATIVE: CASE EVENT DATE: 200908
